FAERS Safety Report 4738815-2 (Version None)
Quarter: 2005Q3

REPORT INFORMATION
  Report Type: 
  Country: None (occurrence: None)
  Receive Date: 20050804
  Receipt Date: 20050722
  Transmission Date: 20060218
  Serious: Yes (Other)
  Sender: FDA-Public Use
  Company Number: 2005076523

PATIENT
  Sex: Female

DRUGS (1)
  1. CELEBREX [Suspect]
     Indication: ARTHRALGIA
     Dosage: ORAL
     Route: 048
     Dates: start: 20030101, end: 20030101

REACTIONS (6)
  - ERYTHEMA [None]
  - HYPERAEMIA [None]
  - PETECHIAE [None]
  - PRURITUS [None]
  - RASH [None]
  - SKIN EXFOLIATION [None]
